FAERS Safety Report 7183624-0 (Version None)
Quarter: 2010Q4

REPORT INFORMATION
  Report Type: 
  Country: None (occurrence: None)
  Receive Date: 20101220
  Receipt Date: 20101220
  Transmission Date: 20110411
  Serious: Yes (Hospitalization)
  Sender: FDA-Public Use
  Company Number: None

PATIENT
  Age: 90 Year
  Sex: Female
  Weight: 52.27 kg

DRUGS (16)
  1. SEPTRA DS [Suspect]
     Indication: URINARY TRACT INFECTION
     Dosage: 1 TABLET DAILY PO
     Route: 048
  2. M.V.I. [Concomitant]
  3. IMDUR [Concomitant]
  4. NORVASC [Concomitant]
  5. TYLENOL [Concomitant]
  6. PRILOSEC [Concomitant]
  7. OPIUM [Concomitant]
  8. LASIX [Concomitant]
  9. LOPRESSOR [Concomitant]
  10. ASPIRIN [Concomitant]
  11. NORCO [Concomitant]
  12. LEVOTHYROXINE [Concomitant]
  13. VIACTIVE [Concomitant]
  14. VIT D [Concomitant]
  15. VIT B12 [Concomitant]
  16. SPIRIVA [Concomitant]

REACTIONS (4)
  - ABDOMINAL PAIN [None]
  - FAILURE TO THRIVE [None]
  - METABOLIC ACIDOSIS [None]
  - RENAL FAILURE ACUTE [None]
